FAERS Safety Report 9088284 (Version 1)
Quarter: 2013Q1

REPORT INFORMATION
  Report Type: Spontaneous
  Country: AU (occurrence: AU)
  Receive Date: 20130201
  Receipt Date: 20130201
  Transmission Date: 20140127
  Serious: Yes (Hospitalization)
  Sender: FDA-Public Use
  Company Number: PHHY2013AU008713

PATIENT
  Age: 81 Year
  Sex: Male

DRUGS (2)
  1. ACLASTA [Suspect]
     Dosage: 5 MG, UNK
     Route: 042
     Dates: start: 20100506
  2. ACLASTA [Suspect]
     Dosage: 5 MG, UNK
     Route: 042
     Dates: start: 20110629

REACTIONS (3)
  - Chronic obstructive pulmonary disease [Recovering/Resolving]
  - Compression fracture [Recovering/Resolving]
  - Osteoporotic fracture [Recovering/Resolving]
